FAERS Safety Report 8120669-8 (Version None)
Quarter: 2012Q1

REPORT INFORMATION
  Report Type: 
  Country: None (occurrence: None)
  Receive Date: 20120207
  Receipt Date: 20120124
  Transmission Date: 20120608
  Serious: Yes (Death, Other)
  Sender: FDA-Public Use
  Company Number: FR-ROCHE-774323

PATIENT
  Sex: Female
  Weight: 60 kg

DRUGS (7)
  1. DEPAKENE [Concomitant]
     Indication: EPILEPSY
     Dosage: DRUG REPORTED AS: DEPAKINE 50, DOSE: 1.5
     Route: 048
  2. FOLIC ACID [Concomitant]
     Indication: CHEMOTHERAPY
     Dosage: DRUG REPORTED AS: SPECIAFOLDINE 0.4, DOSE: 1
     Route: 048
  3. CISPLATIN [Suspect]
     Indication: NON-SMALL CELL LUNG CANCER
     Route: 065
  4. NITRODERM [Concomitant]
     Indication: HYPERTENSION
     Dosage: DOSE REPORTED AS: NITRIDERM 10, ROUTE: PATCH
     Route: 050
  5. PEMETREXED DISODIUM [Suspect]
     Indication: NON-SMALL CELL LUNG CANCER
     Route: 065
  6. OXAZEPAM [Concomitant]
     Indication: ALCOHOL USE
     Dosage: DRUG REPORTED AS: SERESTA 50, DOSE 0.5/0.5/1
     Route: 048
  7. AVASTIN [Suspect]
     Indication: NON-SMALL CELL LUNG CANCER
     Route: 065

REACTIONS (2)
  - TACHYCARDIA [None]
  - ATRIOVENTRICULAR DISSOCIATION [None]
